FAERS Safety Report 22025170 (Version 1)
Quarter: 2023Q1

REPORT INFORMATION
  Report Type: Spontaneous
  Country: US (occurrence: None)
  Receive Date: 20230223
  Receipt Date: 20230223
  Transmission Date: 20230417
  Serious: No
  Sender: FDA-Public Use
  Company Number: US-ROCHE-3101375

PATIENT
  Sex: Female
  Weight: 273 kg

DRUGS (6)
  1. XOLAIR [Suspect]
     Active Substance: OMALIZUMAB
     Indication: Rhinitis allergic
     Route: 065
     Dates: start: 20200128
  2. LOESTRIN NOS [Concomitant]
     Active Substance: ETHINYL ESTRADIOL\NORETHINDRONE ACETATE
     Dosage: 1.5/30-21
     Route: 048
     Dates: start: 20200220
  3. TRAVATAN Z [Concomitant]
     Active Substance: TRAVOPROST
     Route: 047
     Dates: start: 20200220
  4. AJOVY [Concomitant]
     Active Substance: FREMANEZUMAB-VFRM
     Route: 058
     Dates: start: 20200220
  5. PROPRANOLOL HYDROCHLORIDE [Concomitant]
     Active Substance: PROPRANOLOL HYDROCHLORIDE
     Route: 048
     Dates: start: 20200220
  6. SAXENDA [Concomitant]
     Active Substance: LIRAGLUTIDE
     Route: 058
     Dates: start: 20200220

REACTIONS (2)
  - Off label use [Unknown]
  - No adverse event [Unknown]
